FAERS Safety Report 22175094 (Version 1)
Quarter: 2023Q2

REPORT INFORMATION
  Report Type: Report from Study
  Country: US (occurrence: US)
  Receive Date: 20230405
  Receipt Date: 20230405
  Transmission Date: 20230721
  Serious: Yes (Other)
  Sender: FDA-Public Use
  Company Number: US-002147023-NVSC2023US077162

PATIENT
  Sex: Female

DRUGS (2)
  1. PREDNISONE [Suspect]
     Active Substance: PREDNISONE
     Indication: Systemic lupus erythematosus
     Dosage: UNK
     Route: 065
  2. PREDNISONE [Suspect]
     Active Substance: PREDNISONE
     Dosage: UNK (SHE DID UP HER DOSE OF STEROIDS FOR 1 WEEK)
     Route: 065

REACTIONS (17)
  - Systemic lupus erythematosus [Unknown]
  - Rash [Recovered/Resolved]
  - Arthritis [Unknown]
  - Gait disturbance [Unknown]
  - Peripheral swelling [Unknown]
  - Pleurisy [Unknown]
  - Fatigue [Unknown]
  - Pain [Unknown]
  - Paraesthesia [Unknown]
  - Raynaud^s phenomenon [Unknown]
  - Alopecia [Unknown]
  - Palpitations [Unknown]
  - Migraine [Recovering/Resolving]
  - Restrictive pulmonary disease [Unknown]
  - Anxiety [Unknown]
  - Poor quality sleep [Unknown]
  - Drug effect less than expected [Unknown]

NARRATIVE: CASE EVENT DATE: 20190101
